APPROVED DRUG PRODUCT: NYSTATIN AND TRIAMCINOLONE ACETONIDE
Active Ingredient: NYSTATIN; TRIAMCINOLONE ACETONIDE
Strength: 100,000 UNITS/GM;0.1%
Dosage Form/Route: OINTMENT;TOPICAL
Application: A208300 | Product #001
Applicant: GLENMARK PHARMACEUTICALS LTD
Approved: Jun 23, 2016 | RLD: No | RS: No | Type: DISCN